FAERS Safety Report 7135355-0 (Version None)
Quarter: 2010Q4

REPORT INFORMATION
  Report Type: 
  Country: None (occurrence: None)
  Receive Date: 20101203
  Receipt Date: 20101129
  Transmission Date: 20110411
  Serious: Yes (Other)
  Sender: FDA-Public Use
  Company Number: US-PFIZER INC-2010159920

PATIENT
  Sex: Female
  Weight: 45.805 kg

DRUGS (6)
  1. TOVIAZ [Suspect]
     Indication: BLADDER DISORDER
     Dosage: 8 MG, 1X/DAY
     Route: 048
     Dates: start: 20101110
  2. HYDROXYCHLOROQUINE [Suspect]
     Dosage: UNK
  3. WARFARIN SODIUM [Concomitant]
     Indication: CARDIAC DISORDER
     Dosage: UNK
  4. ATENOLOL [Concomitant]
     Dosage: UNK
  5. SOTALOL [Concomitant]
     Dosage: UNK
  6. ISOSORBIDE [Concomitant]
     Dosage: UNK

REACTIONS (2)
  - URINE ABNORMALITY [None]
  - VISUAL IMPAIRMENT [None]
